FAERS Safety Report 17444808 (Version 1)
Quarter: 2020Q1

REPORT INFORMATION
  Report Type: Report from Study
  Country: IT (occurrence: IT)
  Receive Date: 20200221
  Receipt Date: 20200221
  Transmission Date: 20200409
  Serious: Yes (Other)
  Sender: FDA-Public Use
  Company Number: IT-TEVA-2020-IT-1189209

PATIENT
  Age: 73 Year
  Sex: Female

DRUGS (3)
  1. DELORAZEPAM [Suspect]
     Active Substance: DELORAZEPAM
     Indication: INSOMNIA
     Route: 048
  2. QUETIAPINE FUMARATE. [Suspect]
     Active Substance: QUETIAPINE FUMARATE
     Route: 048
  3. LORAZEPAM. [Suspect]
     Active Substance: LORAZEPAM
     Indication: INSOMNIA
     Route: 048

REACTIONS (2)
  - Loss of consciousness [Recovered/Resolved]
  - Speech disorder [Recovered/Resolved]

NARRATIVE: CASE EVENT DATE: 20200115
